FAERS Safety Report 9938131 (Version 1)
Quarter: 2014Q1

REPORT INFORMATION
  Report Type: Report from Study
  Country: US (occurrence: US)
  Receive Date: 20140303
  Receipt Date: 20140303
  Transmission Date: 20141002
  Serious: Yes (Other)
  Sender: FDA-Public Use
  Company Number: US-ROCHE-1352277

PATIENT
  Sex: Male
  Weight: 88.53 kg

DRUGS (1)
  1. AVASTIN [Suspect]
     Indication: GLIOBLASTOMA MULTIFORME
     Route: 042

REACTIONS (2)
  - Brain operation [Unknown]
  - Amnesia [Not Recovered/Not Resolved]
